FAERS Safety Report 5062299-0 (Version None)
Quarter: 2006Q3

REPORT INFORMATION
  Report Type: 
  Country: None (occurrence: None)
  Receive Date: 20060721
  Receipt Date: 20060710
  Transmission Date: 20061208
  Serious: Yes (Other)
  Sender: FDA-Public Use
  Company Number: GXKR2006ES04008

PATIENT
  Age: 52 Year
  Sex: Female

DRUGS (4)
  1. DOCETAXEL (NGX) (DOCETAXEL) UNKNOWN [Suspect]
     Indication: BREAST CANCER
  2. CARBOPLATIN [Suspect]
     Indication: BREAST CANCER
  3. HERCEPTIN [Suspect]
     Indication: BREAST CANCER
     Dosage: SEE IMAGE
  4. MELPHALAN (MELPHALAN) [Suspect]
     Indication: BREAST CANCER

REACTIONS (3)
  - COLITIS [None]
  - HYPERAMMONAEMIA [None]
  - MULTI-ORGAN FAILURE [None]
